FAERS Safety Report 9765496 (Version 1)
Quarter: 2013Q4

REPORT INFORMATION
  Report Type: Spontaneous
  Country: US (occurrence: US)
  Receive Date: 20131217
  Receipt Date: 20131217
  Transmission Date: 20140711
  Serious: No
  Sender: FDA-Public Use
  Company Number: US-BIOGENIDEC-2013BI111494

PATIENT
  Sex: Female
  Weight: 64 kg

DRUGS (9)
  1. TECFIDERA [Suspect]
     Indication: PRODUCT USED FOR UNKNOWN INDICATION
     Route: 048
  2. LOSARTAN POT [Concomitant]
  3. LEVOTHROID [Concomitant]
  4. VITAMIN D [Concomitant]
  5. VITAMIN C [Concomitant]
  6. FISH OIL [Concomitant]
  7. GLUCO/CHONDR/MSM [Concomitant]
     Dosage: DOSE UNIT:
  8. CINNAMON [Concomitant]
  9. OMEPRAZOLE [Concomitant]

REACTIONS (1)
  - Sleep disorder [Unknown]
